FAERS Safety Report 16509479 (Version 1)
Quarter: 2019Q3

REPORT INFORMATION
  Report Type: Spontaneous
  Country: US (occurrence: US)
  Receive Date: 20190701
  Receipt Date: 20190701
  Transmission Date: 20191004
  Serious: Yes (Other)
  Sender: FDA-Public Use
  Company Number: None

PATIENT
  Sex: Female

DRUGS (6)
  1. CAPECITABINE. [Suspect]
     Active Substance: CAPECITABINE
     Indication: BREAST CANCER
     Route: 048
     Dates: start: 20190607
  2. ALPRAZOLAM TAB 0.5 MG [Concomitant]
  3. OXYCOD/APAP TAB 5-325 MG [Concomitant]
  4. TRAZODONE TAB 50 MG [Concomitant]
  5. HYDROCO/APAP TAB 10-325 MG [Concomitant]
  6. VITAMIN D 50000 UNIT [Concomitant]

REACTIONS (3)
  - Hepatic cancer [None]
  - Procedural pain [None]
  - Constipation [None]
